FAERS Safety Report 6230891-3 (Version None)
Quarter: 2009Q2

REPORT INFORMATION
  Report Type: 
  Country: None (occurrence: None)
  Receive Date: 20090616
  Receipt Date: 20090605
  Transmission Date: 20091009
  Serious: Yes (Other)
  Sender: FDA-Public Use
  Company Number: PHEH2009US06167

PATIENT
  Sex: Female

DRUGS (11)
  1. RECLAST [Suspect]
     Dosage: UNK
     Dates: start: 20090528
  2. BENICAR HCT [Concomitant]
     Dosage: 40 MG, UNK
  3. NITROFUR-C [Concomitant]
     Dosage: 100 MG, UNK
  4. PHENAZOPYRIDINE HCL TAB [Concomitant]
     Dosage: 100 MG, UNK
  5. NORVASC [Concomitant]
     Dosage: 100 MG, UNK
  6. CITRACAL [Concomitant]
     Dosage: UNK
  7. MULTI-VITAMINS [Concomitant]
     Dosage: UNK
  8. MULTIVITAMIN [Concomitant]
     Dosage: UNK
  9. SELENIUM [Concomitant]
     Dosage: UNK
  10. LOVAZA [Concomitant]
     Dosage: UNK
  11. VITAMIN D [Concomitant]
     Dosage: UNK

REACTIONS (6)
  - ARTHRALGIA [None]
  - BURNING SENSATION [None]
  - HEADACHE [None]
  - MYALGIA [None]
  - NAUSEA [None]
  - URINARY TRACT INFECTION [None]
